FAERS Safety Report 22614282 (Version 2)
Quarter: 2023Q2

REPORT INFORMATION
  Report Type: Report from Study
  Country: CO (occurrence: CO)
  Receive Date: 20230619
  Receipt Date: 20230628
  Transmission Date: 20230721
  Serious: Yes (Other)
  Sender: FDA-Public Use
  Company Number: CO-ZAMBON-202302770COR

PATIENT
  Age: 71 Year
  Sex: Male

DRUGS (4)
  1. XADAGO [Suspect]
     Active Substance: SAFINAMIDE MESYLATE
     Indication: Parkinson^s disease
     Dosage: 50 MG
     Route: 048
     Dates: start: 20230104, end: 20230530
  2. XADAGO [Suspect]
     Active Substance: SAFINAMIDE MESYLATE
     Dosage: 100 MG
     Route: 048
     Dates: start: 20230531, end: 20230605
  3. XADAGO [Suspect]
     Active Substance: SAFINAMIDE MESYLATE
     Dosage: 50 MG
     Route: 048
     Dates: start: 20230605
  4. CARBIDOPA\LEVODOPA [Concomitant]
     Active Substance: CARBIDOPA\LEVODOPA
     Indication: Parkinson^s disease
     Dosage: EACH DF CONTAINS 25-250 MG
     Route: 048

REACTIONS (8)
  - Delirium [Recovered/Resolved]
  - Nightmare [Recovered/Resolved]
  - Fear [Not Recovered/Not Resolved]
  - Thirst [Recovered/Resolved]
  - Affect lability [Not Recovered/Not Resolved]
  - Dysarthria [Recovered/Resolved]
  - Anxiety [Not Recovered/Not Resolved]
  - Somnolence [Recovered/Resolved]

NARRATIVE: CASE EVENT DATE: 20230531
